FAERS Safety Report 5589855-5 (Version None)
Quarter: 2008Q1

REPORT INFORMATION
  Report Type: 
  Country: None (occurrence: None)
  Receive Date: 20080114
  Receipt Date: 20080109
  Transmission Date: 20080703
  Serious: Yes (Hospitalization)
  Sender: FDA-Public Use
  Company Number: AU-MERCK-0801AUS00058

PATIENT
  Age: 71 Year
  Sex: Female

DRUGS (12)
  1. ZOCOR [Suspect]
     Indication: METABOLIC DISORDER
     Route: 048
     Dates: end: 20070416
  2. ALENDRONATE SODIUM [Concomitant]
     Indication: OSTEOPOROSIS
     Route: 065
  3. CALCIUM CARBONATE [Concomitant]
     Route: 065
  4. METFORMIN HYDROCHLORIDE [Concomitant]
     Indication: DIABETES MELLITUS
     Route: 065
  5. CLOPIDOGREL BISULFATE [Concomitant]
     Indication: MYOCARDIAL ISCHAEMIA
     Route: 065
  6. METOPROLOL TARTRATE [Concomitant]
     Indication: MYOCARDIAL ISCHAEMIA
     Route: 065
  7. HYDROCHLOROTHIAZIDE AND IRBESARTAN [Concomitant]
     Indication: ESSENTIAL HYPERTENSION
     Route: 065
  8. RANITIDINE HYDROCHLORIDE [Concomitant]
     Indication: OESOPHAGEAL DISORDER
     Route: 065
  9. ESOMEPRAZOLE MAGNESIUM [Concomitant]
     Indication: OESOPHAGEAL DISORDER
     Route: 065
  10. DOMPERIDONE [Concomitant]
     Indication: OESOPHAGEAL DISORDER
     Route: 065
  11. BETAMETHASONE DIPROPIONATE [Concomitant]
     Route: 065
  12. TRAMADOL HYDROCHLORIDE [Concomitant]
     Indication: SENSORY DISTURBANCE
     Route: 065

REACTIONS (6)
  - BACK PAIN [None]
  - BLOOD CREATINE PHOSPHOKINASE INCREASED [None]
  - GAIT DISTURBANCE [None]
  - MUSCULAR WEAKNESS [None]
  - RHABDOMYOLYSIS [None]
  - SENSATION OF HEAVINESS [None]
